FAERS Safety Report 6819796-4 (Version None)
Quarter: 2010Q3

REPORT INFORMATION
  Report Type: 
  Country: None (occurrence: None)
  Receive Date: 20100707
  Receipt Date: 20100624
  Transmission Date: 20110219
  Serious: Yes (Hospitalization, Other)
  Sender: FDA-Public Use
  Company Number: PHHY2008FR25530

PATIENT
  Sex: Male

DRUGS (7)
  1. CGP 57148B T35717+ [Suspect]
     Indication: CHRONIC MYELOID LEUKAEMIA
     Dosage: 400 MG DAILY
  2. SPIRIVA [Concomitant]
     Dosage: 0.5 MG DAILY
  3. KARDEGIC [Concomitant]
     Dosage: 75 MG, QD
  4. PLAVIX [Concomitant]
  5. NOCTAMID [Concomitant]
     Dosage: 3 BID
  6. TAHOR [Concomitant]
     Dosage: 20 MG DAILY
  7. TENORMIN [Concomitant]
     Dosage: 50 DAILY

REACTIONS (10)
  - ANGIOPLASTY [None]
  - BUNDLE BRANCH BLOCK LEFT [None]
  - COUGH [None]
  - DYSPNOEA [None]
  - EJECTION FRACTION DECREASED [None]
  - IN-STENT ARTERIAL RESTENOSIS [None]
  - ISCHAEMIC CARDIOMYOPATHY [None]
  - PAIN IN EXTREMITY [None]
  - PERIPHERAL VASCULAR DISORDER [None]
  - STENT PLACEMENT [None]
